FAERS Safety Report 5802504-3 (Version None)
Quarter: 2008Q2

REPORT INFORMATION
  Report Type: 
  Country: None (occurrence: None)
  Receive Date: 20080626
  Receipt Date: 20070724
  Transmission Date: 20081010
  Serious: Yes (Other)
  Sender: FDA-Public Use
  Company Number: 39373

PATIENT
  Age: 65 Year
  Sex: Male
  Weight: 72.5755 kg

DRUGS (1)
  1. ADENOSINE [Suspect]
     Indication: CARDIOVERSION
     Dosage: 12MG/BOLUS/X2 IV
     Route: 042
     Dates: start: 20070723

REACTIONS (1)
  - DRUG INEFFECTIVE [None]
